FAERS Safety Report 6902565-4 (Version None)
Quarter: 2010Q3

REPORT INFORMATION
  Report Type: 
  Country: None (occurrence: None)
  Receive Date: 20100803
  Receipt Date: 20080602
  Transmission Date: 20110219
  Serious: Yes (Hospitalization, Other)
  Sender: FDA-Public Use
  Company Number: US-PFIZER INC-2008022537

PATIENT

DRUGS (2)
  1. LYRICA [Suspect]
     Indication: DIABETIC NEUROPATHY
  2. SODIUM [Suspect]

REACTIONS (3)
  - CARDIAC FAILURE CONGESTIVE [None]
  - OEDEMA [None]
  - WEIGHT INCREASED [None]
